FAERS Safety Report 18520316 (Version 1)
Quarter: 2020Q4

REPORT INFORMATION
  Report Type: Other
  Country: CN (occurrence: CN)
  Receive Date: 20201118
  Receipt Date: 20201118
  Transmission Date: 20210114
  Serious: Yes (Other)
  Sender: FDA-Public Use
  Company Number: CN-ROCHE-2714819

PATIENT

DRUGS (2)
  1. BEVACIZUMAB. [Suspect]
     Active Substance: BEVACIZUMAB
     Indication: BREAST CANCER METASTATIC
     Dosage: ON DAYS 1 AND 2
     Route: 042
  2. DOCETAXEL. [Suspect]
     Active Substance: DOCETAXEL
     Indication: BREAST CANCER METASTATIC
     Dosage: 1 H ON DAY 1
     Route: 042

REACTIONS (18)
  - Anaemia [Unknown]
  - Vomiting [Recovering/Resolving]
  - Thrombocytopenia [Unknown]
  - Neutropenia [Unknown]
  - Nausea [Recovering/Resolving]
  - Epistaxis [Unknown]
  - Febrile neutropenia [Unknown]
  - Fatigue [Recovering/Resolving]
  - Arthralgia [Recovering/Resolving]
  - Hypertension [Unknown]
  - Alanine aminotransferase increased [Unknown]
  - Aspartate aminotransferase increased [Unknown]
  - Proteinuria [Unknown]
  - Diarrhoea [Recovering/Resolving]
  - Myelosuppression [Unknown]
  - Myalgia [Recovering/Resolving]
  - Neurotoxicity [Recovering/Resolving]
  - Mucosal inflammation [Recovering/Resolving]
